FAERS Safety Report 19787966 (Version 1)
Quarter: 2021Q3

REPORT INFORMATION
  Report Type: Report from Study
  Country: US (occurrence: US)
  Receive Date: 20210903
  Receipt Date: 20210903
  Transmission Date: 20211014
  Serious: Yes (Hospitalization, Other)
  Sender: FDA-Public Use
  Company Number: US-TEVA-2021-US-1947393

PATIENT
  Age: 47 Year
  Sex: Male
  Weight: 78.8 kg

DRUGS (24)
  1. ZOVIRAX [Concomitant]
     Active Substance: ACYCLOVIR
     Route: 065
  2. HYDROCORTISONE. [Concomitant]
     Active Substance: HYDROCORTISONE
     Route: 065
  3. ROSUVASTATIN. [Concomitant]
     Active Substance: ROSUVASTATIN
     Route: 065
  4. SULFAMETHOXAZOLE [Concomitant]
     Active Substance: SULFAMETHOXAZOLE
     Route: 065
  5. VINCRISTINE SULFATE. [Suspect]
     Active Substance: VINCRISTINE SULFATE
     Indication: B-CELL TYPE ACUTE LEUKAEMIA
     Dosage: 0.4 MG/M2/DAY, CYCLIC(DAYS 1?4 Q28 DAYS)
     Route: 042
     Dates: start: 20210330, end: 20210402
  6. INOTUZUMAB OZOGAMICIN [Suspect]
     Active Substance: INOTUZUMAB OZOGAMICIN
     Indication: B-CELL TYPE ACUTE LEUKAEMIA
     Dosage: DAY 8 AND DAY 15 Q28 DAYS
     Route: 042
     Dates: start: 20210406
  7. PRINIVIL [Suspect]
     Active Substance: LISINOPRIL
     Indication: HYPERTENSION
     Route: 048
     Dates: start: 20180502, end: 20210412
  8. DOXORUBICIN HCL [Suspect]
     Active Substance: DOXORUBICIN HYDROCHLORIDE
     Indication: B-CELL TYPE ACUTE LEUKAEMIA
     Dosage: 10 MG/M2 CYCLIC: DAYS 1?4 EVERY (Q) 28 DAYS.
     Route: 042
     Dates: start: 20210330, end: 20210402
  9. COREG [Suspect]
     Active Substance: CARVEDILOL
     Route: 065
     Dates: start: 20210414
  10. LEVAQUIN [Concomitant]
     Active Substance: LEVOFLOXACIN
     Route: 065
  11. QUETIAPINE. [Concomitant]
     Active Substance: QUETIAPINE
     Route: 065
  12. URSODIOL. [Concomitant]
     Active Substance: URSODIOL
     Route: 065
  13. PREDNISONE. [Suspect]
     Active Substance: PREDNISONE
     Indication: B-CELL TYPE ACUTE LEUKAEMIA
     Dosage: 60 MG/M2, CYCLIC(BID, DAYS 1?5 Q28)
     Route: 048
     Dates: start: 20210330, end: 20210403
  14. OMEGA?3 FATTY ACIDS [Concomitant]
     Active Substance: OMEGA-3 FATTY ACIDS
     Route: 065
  15. POTASSIUM CHLORIDE. [Concomitant]
     Active Substance: POTASSIUM CHLORIDE
     Route: 065
  16. CYCLOPHOSPHAMIDE. [Suspect]
     Active Substance: CYCLOPHOSPHAMIDE
     Indication: B-CELL TYPE ACUTE LEUKAEMIA
     Dosage: 750 MG/M2 CYCLIC: DAY 5 Q28 DAYS
     Route: 042
     Dates: start: 20210403, end: 20210403
  17. PEPCID [Concomitant]
     Active Substance: FAMOTIDINE
     Route: 065
  18. DIFLUCAN [Concomitant]
     Active Substance: FLUCONAZOLE
     Route: 065
  19. ETOPOSIDE. [Suspect]
     Active Substance: ETOPOSIDE
     Indication: B-CELL TYPE ACUTE LEUKAEMIA
     Dosage: 50 MG/M2, CYCLIC( DAYS 1?4 Q28 DAYS)
     Route: 042
     Dates: start: 20210330, end: 20210402
  20. COREG [Suspect]
     Active Substance: CARVEDILOL
     Indication: HYPERTENSION
     Route: 048
     Dates: start: 20180605, end: 20210412
  21. ZOFRAN [Concomitant]
     Active Substance: ONDANSETRON HYDROCHLORIDE
     Route: 065
  22. MAGNESIUM OXIDE. [Concomitant]
     Active Substance: MAGNESIUM OXIDE
     Route: 065
  23. COMPAZINE [Concomitant]
     Active Substance: PROCHLORPERAZINE MALEATE
     Route: 065
  24. ZESTRIL [Suspect]
     Active Substance: LISINOPRIL
     Indication: HYPERTENSION
     Route: 048
     Dates: start: 20180502, end: 20210412

REACTIONS (10)
  - Syncope [Recovering/Resolving]
  - Dizziness [Unknown]
  - Dehydration [Unknown]
  - Mucosal inflammation [Unknown]
  - Febrile neutropenia [Not Recovered/Not Resolved]
  - Loss of consciousness [Unknown]
  - Hypophagia [Unknown]
  - Hypotension [Not Recovered/Not Resolved]
  - Asthenia [Unknown]
  - Muscle spasms [Unknown]

NARRATIVE: CASE EVENT DATE: 20210411
